FAERS Safety Report 23861785 (Version 1)
Quarter: 2024Q2

REPORT INFORMATION
  Report Type: Spontaneous
  Country: US (occurrence: US)
  Receive Date: 20240516
  Receipt Date: 20240516
  Transmission Date: 20240722
  Serious: No
  Sender: FDA-Public Use
  Company Number: US-TEVA-VS-3193226

PATIENT

DRUGS (1)
  1. LENALIDOMIDE [Suspect]
     Active Substance: LENALIDOMIDE
     Indication: Plasma cell myeloma
     Route: 065

REACTIONS (2)
  - Product dose omission issue [Unknown]
  - Product physical issue [Unknown]
